FAERS Safety Report 4449728-8 (Version None)
Quarter: 2004Q3

REPORT INFORMATION
  Report Type: 
  Country: None (occurrence: None)
  Receive Date: 20040915
  Receipt Date: 20040915
  Transmission Date: 20050211
  Serious: Yes (Hospitalization)
  Sender: FDA-Public Use
  Company Number: None

PATIENT
  Sex: Female
  Weight: 58 kg

DRUGS (4)
  1. CRESTOR [Suspect]
     Indication: HYPERLIPIDAEMIA
     Dosage: ORAL
     Route: 048
     Dates: start: 20040301, end: 20040330
  2. AMLODIPINE [Concomitant]
  3. BENAZEPRIL HCL [Concomitant]
  4. LOTREL [Concomitant]

REACTIONS (1)
  - RHABDOMYOLYSIS [None]
